FAERS Safety Report 7356234-X (Version None)
Quarter: 2011Q1

REPORT INFORMATION
  Report Type: 
  Country: None (occurrence: None)
  Receive Date: 20110316
  Receipt Date: 20110302
  Transmission Date: 20110831
  Serious: Yes (Other)
  Sender: FDA-Public Use
  Company Number: US-BAYER-201034341NA

PATIENT
  Sex: Female
  Weight: 88 kg

DRUGS (4)
  1. YAZ [Suspect]
     Indication: PRODUCT USED FOR UNKNOWN INDICATION
     Route: 048
     Dates: start: 20100101, end: 20100601
  2. ATIVAN [Concomitant]
  3. LITHIUM [Concomitant]
  4. TRAZODONE [Concomitant]

REACTIONS (1)
  - CEREBROVASCULAR ACCIDENT [None]
